FAERS Safety Report 6370678-4 (Version None)
Quarter: 2009Q3

REPORT INFORMATION
  Report Type: 
  Country: None (occurrence: None)
  Receive Date: 20090918
  Receipt Date: 20090916
  Transmission Date: 20100115
  Serious: Yes (Other)
  Sender: FDA-Public Use
  Company Number: GXKR2009DE08619

PATIENT
  Age: 70 Year
  Sex: Female

DRUGS (1)
  1. ALENDRON-HEXAL                  (ALENDRONIC ACID) [Suspect]
     Indication: OSTEOPOROSIS
     Dosage: 70 MG, QW, ORAL
     Route: 048

REACTIONS (8)
  - ABSCESS [None]
  - INJURY [None]
  - ORAL CAVITY FISTULA [None]
  - OSTEOLYSIS [None]
  - OSTEOMYELITIS [None]
  - OSTEONECROSIS [None]
  - SWELLING FACE [None]
  - TOOTH LOSS [None]
